FAERS Safety Report 23997262 (Version 1)
Quarter: 2024Q2

REPORT INFORMATION
  Report Type: Spontaneous
  Country: US (occurrence: US)
  Receive Date: 20240621
  Receipt Date: 20240621
  Transmission Date: 20240715
  Serious: Yes (Other)
  Sender: FDA-Public Use
  Company Number: US-AUROBINDO-AUR-APL-2024-015890

PATIENT
  Age: 71 Year
  Sex: Female
  Weight: 51.7 kg

DRUGS (1)
  1. ZOLPIDEM TARTRATE [Suspect]
     Active Substance: ZOLPIDEM TARTRATE
     Indication: Sleep disorder
     Dosage: 1 DOSAGE FORM, AT BED TIME (01 PILL AT NIGHT)
     Route: 065

REACTIONS (3)
  - Loss of consciousness [Unknown]
  - Insomnia [Unknown]
  - Drug ineffective [Unknown]
